FAERS Safety Report 16654788 (Version 1)
Quarter: 2019Q3

REPORT INFORMATION
  Report Type: Spontaneous
  Country: CA (occurrence: CA)
  Receive Date: 20190801
  Receipt Date: 20190801
  Transmission Date: 20191004
  Serious: Yes (Other)
  Sender: FDA-Public Use
  Company Number: CA-AUROBINDO-AUR-APL-2019-044074

PATIENT

DRUGS (1)
  1. LEVETIRACETAM TABLET [Suspect]
     Active Substance: LEVETIRACETAM
     Indication: EPILEPSY
     Dosage: 2.0 GRAM, TWO TIMES A DAY
     Route: 065

REACTIONS (2)
  - Focal dyscognitive seizures [Recovered/Resolved]
  - Product substitution issue [Recovered/Resolved]
